FAERS Safety Report 8499140-X (Version None)
Quarter: 2012Q3

REPORT INFORMATION
  Report Type: 
  Country: None (occurrence: None)
  Receive Date: 20120710
  Receipt Date: 20120627
  Transmission Date: 20120928
  Serious: Yes (Other)
  Sender: FDA-Public Use
  Company Number: US-ELI_LILLY_AND_COMPANY-US201206007413

PATIENT
  Sex: Male

DRUGS (6)
  1. LANTUS [Concomitant]
  2. HUMALOG [Suspect]
     Indication: DIABETES MELLITUS
     Dosage: UNK, UNKNOWN
  3. HUMALOG [Suspect]
     Dosage: 4 U, TID
     Dates: start: 20110101
  4. HUMALOG [Suspect]
     Dosage: 15 U, SINGLE
  5. REGULAR ILETIN 2 [Suspect]
     Indication: DIABETES MELLITUS
     Dosage: UNK, UNKNOWN
  6. INSULIN [Concomitant]

REACTIONS (8)
  - BLOOD GLUCOSE DECREASED [None]
  - BLOOD GLUCOSE INCREASED [None]
  - DRUG LABEL CONFUSION [None]
  - CONVULSION [None]
  - LOSS OF CONSCIOUSNESS [None]
  - ADVERSE EVENT [None]
  - INCORRECT DOSE ADMINISTERED [None]
  - DRUG INEFFECTIVE [None]
